FAERS Safety Report 5169380-6 (Version None)
Quarter: 2006Q4

REPORT INFORMATION
  Report Type: 
  Country: None (occurrence: None)
  Receive Date: 20061127
  Receipt Date: 20061121
  Transmission Date: 20070319
  Serious: Yes (Hospitalization)
  Sender: FDA-Public Use
  Company Number: GXKR2006FR07608

PATIENT
  Age: 85 Year
  Sex: Male

DRUGS (2)
  1. TRIMETAZIDINE (NGX) (TRIMETAZIDINE) [Suspect]
     Dosage: ORAL
     Route: 048
  2. BISOPROLOL GNR (NGX) (BISOPROLOL) [Suspect]
     Dosage: ORAL
     Route: 048

REACTIONS (4)
  - DYSPHONIA [None]
  - ENLARGED UVULA [None]
  - HYPERTROPHY [None]
  - LARYNGEAL OEDEMA [None]
